FAERS Safety Report 4308685-5 (Version None)
Quarter: 2004Q1

REPORT INFORMATION
  Report Type: 
  Country: None (occurrence: None)
  Receive Date: 20040301
  Receipt Date: 20040301
  Transmission Date: 20041129
  Serious: Yes (Hospitalization)
  Sender: FDA-Public Use
  Company Number: None

PATIENT
  Age: 34 Year
  Sex: Male

DRUGS (8)
  1. BEVACIZUMAB 10 MG/KG [Suspect]
     Indication: COLON CANCER
     Dosage: 831 MG
     Dates: start: 20031103, end: 20031215
  2. XELODA 1000 MG/M2 BID M-F QWK [Interacting]
     Dosage: 2000 MG BID
  3. OXALIPLATIN 85MG/M2 Q 2 WK [Suspect]
     Dosage: 170 MG
  4. PAXIL CR [Concomitant]
  5. PROTONIX [Concomitant]
  6. OXYCONTIN [Concomitant]
  7. DICYCLOMINE [Concomitant]
  8. ZOFRAN [Concomitant]

REACTIONS (4)
  - ABDOMINAL HERNIA [None]
  - POST PROCEDURAL COMPLICATION [None]
  - POSTOPERATIVE WOUND COMPLICATION [None]
  - WOUND DEHISCENCE [None]
